FAERS Safety Report 4373883-1 (Version None)
Quarter: 2004Q1

REPORT INFORMATION
  Report Type: 
  Country: None (occurrence: None)
  Receive Date: 20040305
  Receipt Date: 20031210
  Transmission Date: 20041129
  Serious: Yes (Other)
  Sender: FDA-Public Use
  Company Number: 2003UW16407

PATIENT
  Age: 68 Year
  Sex: Female
  Weight: 65.7716 kg

DRUGS (5)
  1. CRESTOR [Suspect]
     Indication: BLOOD CHOLESTEROL INCREASED
  2. DIOVAN [Concomitant]
  3. RHINOCORT [Concomitant]
  4. ASPIRIN [Concomitant]
  5. MULTIVITAMIN [Concomitant]

REACTIONS (2)
  - FLATULENCE [None]
  - LOOSE STOOLS [None]
